FAERS Safety Report 16930973 (Version 1)
Quarter: 2019Q4

REPORT INFORMATION
  Report Type: Spontaneous
  Country: US (occurrence: US)
  Receive Date: 20191017
  Receipt Date: 20191017
  Transmission Date: 20200122
  Serious: No
  Sender: FDA-Public Use
  Company Number: US-BIODELIVERY SCIENCES INTERNATIONAL-2019BDSI0764

PATIENT
  Age: 64 Year
  Sex: Female

DRUGS (1)
  1. NALDEMEDINE [Suspect]
     Active Substance: NALDEMEDINE
     Indication: CONSTIPATION
     Route: 048
     Dates: start: 20180301

REACTIONS (2)
  - Wrong technique in product usage process [Recovered/Resolved]
  - Product administration error [Recovered/Resolved]

NARRATIVE: CASE EVENT DATE: 20180510
